FAERS Safety Report 11574550 (Version 1)
Quarter: 2015Q3

REPORT INFORMATION
  Report Type: Spontaneous
  Country: US (occurrence: None)
  Receive Date: 20150928
  Receipt Date: 20150928
  Transmission Date: 20151125
  Serious: No
  Sender: FDA-Public Use
  Company Number: None

PATIENT
  Age: 72 Year
  Sex: Female
  Weight: 90.5 kg

DRUGS (2)
  1. DEXAMETHASONE 20MG [Suspect]
     Active Substance: DEXAMETHASONE
     Dosage: IV DAYS 1,2,8,9,15,16 AND UP TO 12 CYCLES.
  2. CARFILZOMIB 56MG/M2 [Suspect]
     Active Substance: CARFILZOMIB
     Dosage: IV DAYS 1,2,8,9, 15, 16 AND UP TO 12 CYCLES

REACTIONS (16)
  - Bacteraemia [None]
  - Back pain [None]
  - Lacrimation increased [None]
  - Vision blurred [None]
  - Pain in extremity [None]
  - Fall [None]
  - Eye irritation [None]
  - Claustrophobia [None]
  - Paraesthesia [None]
  - Urinary tract infection [None]
  - Condition aggravated [None]
  - Purulence [None]
  - Confusional state [None]
  - Arthralgia [None]
  - Eye discharge [None]
  - Ocular hyperaemia [None]

NARRATIVE: CASE EVENT DATE: 20150916
